FAERS Safety Report 23338786 (Version 1)
Quarter: 2023Q4

REPORT INFORMATION
  Report Type: Spontaneous
  Country: US (occurrence: None)
  Receive Date: 20231225
  Receipt Date: 20231225
  Transmission Date: 20240109
  Serious: No
  Sender: FDA-Public Use
  Company Number: None

PATIENT
  Age: 53 Year
  Sex: Male
  Weight: 155.25 kg

DRUGS (3)
  1. ELIQUIS [Suspect]
     Active Substance: APIXABAN
     Indication: Thrombosis prophylaxis
     Dosage: TWICE A DAY ORAL?
     Route: 048
     Dates: start: 20231026
  2. VALSARTAN [Concomitant]
     Active Substance: VALSARTAN
  3. FISH OIL [Concomitant]
     Active Substance: FISH OIL

REACTIONS (4)
  - Headache [None]
  - Hyperaesthesia teeth [None]
  - Feeling cold [None]
  - Pain [None]

NARRATIVE: CASE EVENT DATE: 20231026
